FAERS Safety Report 7769701-1 (Version None)
Quarter: 2011Q3

REPORT INFORMATION
  Report Type: 
  Country: None (occurrence: None)
  Receive Date: 20110922
  Receipt Date: 20101228
  Transmission Date: 20111222
  Serious: No
  Sender: FDA-Public Use
  Company Number: US-ASTRAZENECA-2008UW04659

PATIENT
  Age: 51 Year
  Sex: Female
  Weight: 122.5 kg

DRUGS (18)
  1. SEROQUEL [Suspect]
     Route: 048
     Dates: start: 20020801, end: 20080328
  2. SEROQUEL [Suspect]
     Dosage: 1 TAB IN AM AND 2 TABS IN PM
     Route: 048
     Dates: start: 20060101
  3. ZYPREXA [Concomitant]
     Indication: DEPRESSION
     Dates: start: 19970101, end: 19980101
  4. SEROQUEL [Suspect]
     Indication: SLEEP DISORDER
     Route: 048
     Dates: start: 19980101
  5. SEROQUEL [Suspect]
     Indication: DEPRESSION
     Route: 048
     Dates: start: 19980101
  6. SEROQUEL [Suspect]
     Route: 048
     Dates: start: 20020801, end: 20080328
  7. SEROQUEL [Suspect]
     Dosage: 1 TAB IN AM AND 2 TABS IN PM
     Route: 048
     Dates: start: 20060101
  8. SEROQUEL [Suspect]
     Dosage: 1 TAB IN AM AND 2 TABS IN PM
     Route: 048
     Dates: start: 20060101
  9. LISINOPRIL [Concomitant]
     Route: 048
     Dates: start: 20060101
  10. SEROQUEL [Suspect]
     Dosage: 1 TAB IN AM AND 2 TABS IN PM
     Route: 048
     Dates: start: 20060101
  11. SIMVASTATIN [Concomitant]
     Dates: start: 20100506
  12. ZANTAC [Concomitant]
     Route: 048
     Dates: start: 20060101
  13. PERCOCET [Concomitant]
     Dosage: 10-650 MG, 1 (ONE) TABLET EVERY SIX HOURS, AS NEEDED.
     Route: 065
     Dates: start: 20100119
  14. SIMVASTATIN [Concomitant]
     Route: 048
     Dates: start: 20060101
  15. SEROQUEL [Suspect]
     Indication: SCHIZOPHRENIA
     Route: 048
     Dates: start: 19980101
  16. SEROQUEL [Suspect]
     Route: 048
     Dates: start: 20020801, end: 20080328
  17. SEROQUEL [Suspect]
     Indication: INSOMNIA
     Route: 048
     Dates: start: 19980101
  18. SEROQUEL [Suspect]
     Route: 048
     Dates: start: 20020801, end: 20080328

REACTIONS (5)
  - TYPE 2 DIABETES MELLITUS [None]
  - ADVERSE DRUG REACTION [None]
  - OBESITY [None]
  - DIABETIC COMPLICATION [None]
  - TYPE 1 DIABETES MELLITUS [None]
